FAERS Safety Report 14364481 (Version 4)
Quarter: 2018Q1

REPORT INFORMATION
  Report Type: Spontaneous
  Country: US (occurrence: US)
  Receive Date: 20180108
  Receipt Date: 20180207
  Transmission Date: 20180509
  Serious: Yes (Hospitalization)
  Sender: FDA-Public Use
  Company Number: US-CELGENEUS-USA-20180100383

PATIENT
  Age: 71 Year
  Sex: Male
  Weight: 71.28 kg

DRUGS (1)
  1. REVLIMID [Suspect]
     Active Substance: LENALIDOMIDE
     Indication: PLASMA CELL MYELOMA
     Dosage: 25 MILLIGRAM
     Route: 048
     Dates: start: 20170905

REACTIONS (7)
  - Oxygen saturation decreased [Unknown]
  - Vomiting [Unknown]
  - Pneumonia [Recovered/Resolved]
  - Nausea [Unknown]
  - Hypotension [Unknown]
  - Respiratory rate decreased [Unknown]
  - Sepsis [Recovered/Resolved]

NARRATIVE: CASE EVENT DATE: 20171226
